FAERS Safety Report 6080885-6 (Version None)
Quarter: 2009Q1

REPORT INFORMATION
  Report Type: 
  Country: None (occurrence: None)
  Receive Date: 20090217
  Receipt Date: 20090205
  Transmission Date: 20090719
  Serious: Yes (Hospitalization, Other)
  Sender: FDA-Public Use
  Company Number: FR-ROXANE LABORATORIES, INC.-2009-RO-00122RO

PATIENT
  Age: 22 Year
  Sex: Female

DRUGS (8)
  1. CYCLOPHOSPHAMIDE [Suspect]
     Indication: GLOMERULONEPHRITIS PROLIFERATIVE
  2. CYCLOPHOSPHAMIDE [Suspect]
  3. PREDNISONE [Suspect]
  4. PREDNISONE [Suspect]
     Dosage: 50MG
  5. AZATHIOPRINE [Suspect]
  6. HYDROXYCHLOROQUINE SULFATE [Suspect]
  7. ANTICOAGULATION THERAPY [Suspect]
     Indication: ANTICOAGULANT THERAPY
  8. BENZODIAZEPINES [Concomitant]
     Indication: CONVULSION

REACTIONS (7)
  - CONVULSION [None]
  - GLOMERULONEPHRITIS PROLIFERATIVE [None]
  - PERIRENAL HAEMATOMA [None]
  - RENAL FAILURE ACUTE [None]
  - REVERSIBLE POSTERIOR LEUKOENCEPHALOPATHY SYNDROME [None]
  - SEPSIS [None]
  - SYSTEMIC LUPUS ERYTHEMATOSUS [None]
